FAERS Safety Report 7389022-9 (Version None)
Quarter: 2011Q2

REPORT INFORMATION
  Report Type: 
  Country: None (occurrence: None)
  Receive Date: 20110401
  Receipt Date: 20110314
  Transmission Date: 20111010
  Serious: Yes (Other)
  Sender: FDA-Public Use
  Company Number: US-PFIZER INC-2011049494

PATIENT
  Sex: Female
  Weight: 62 kg

DRUGS (3)
  1. CELEXA [Concomitant]
     Indication: DEPRESSION
     Dosage: UNK
  2. CHANTIX [Suspect]
     Indication: SMOKING CESSATION THERAPY
     Dosage: 0.5 MG, 1X/DAY
     Route: 048
     Dates: start: 20110301, end: 20110301
  3. CHANTIX [Suspect]
     Dosage: 1 MG, 2X/DAY
     Dates: start: 20110301, end: 20110314

REACTIONS (5)
  - HALLUCINATION [None]
  - AGGRESSION [None]
  - CONFUSIONAL STATE [None]
  - ANGER [None]
  - CRYING [None]
